FAERS Safety Report 13455584 (Version 2)
Quarter: 2017Q2

REPORT INFORMATION
  Report Type: Spontaneous
  Country: FR (occurrence: FR)
  Receive Date: 20170419
  Receipt Date: 20170623
  Transmission Date: 20170830
  Serious: No
  Sender: FDA-Public Use
  Company Number: FR-TOLMAR, INC.-2017FR004719

PATIENT
  Age: 82 Year
  Sex: Male

DRUGS (1)
  1. ELIGARD [Suspect]
     Active Substance: LEUPROLIDE ACETATE
     Indication: PROSTATE CANCER
     Dosage: UNK
     Route: 065
     Dates: start: 2014

REACTIONS (1)
  - Subcorneal pustular dermatosis [Recovered/Resolved]

NARRATIVE: CASE EVENT DATE: 2016
